FAERS Safety Report 16857677 (Version 1)
Quarter: 2019Q3

REPORT INFORMATION
  Report Type: Spontaneous
  Country: CA (occurrence: CA)
  Receive Date: 20190926
  Receipt Date: 20190926
  Transmission Date: 20191005
  Serious: Yes (Hospitalization, Disabling, Other)
  Sender: FDA-Public Use
  Company Number: CA-AMGEN-CANSP2019156086

PATIENT
  Age: 58 Year
  Sex: Female
  Weight: 47 kg

DRUGS (3)
  1. PROLIA [Suspect]
     Active Substance: DENOSUMAB
     Indication: OSTEOPOROSIS
     Dosage: 60 MILLIGRAM, Q6MO
     Route: 058
  2. ATORVASTATIN [Concomitant]
     Active Substance: ATORVASTATIN
     Dosage: UNK
  3. METFORMIN [Concomitant]
     Active Substance: METFORMIN HYDROCHLORIDE
     Dosage: UNK

REACTIONS (8)
  - Sleep disorder [Recovering/Resolving]
  - C-telopeptide increased [Recovering/Resolving]
  - Impaired healing [Recovering/Resolving]
  - Femur fracture [Recovering/Resolving]
  - Walking disability [Recovering/Resolving]
  - Pain [Recovering/Resolving]
  - X-ray of pelvis and hip abnormal [Recovering/Resolving]
  - Fall [Recovering/Resolving]
